FAERS Safety Report 7676077-7 (Version None)
Quarter: 2011Q3

REPORT INFORMATION
  Report Type: 
  Country: None (occurrence: None)
  Receive Date: 20110811
  Receipt Date: 20110808
  Transmission Date: 20111222
  Serious: Yes (Hospitalization)
  Sender: FDA-Public Use
  Company Number: US-BRISTOL-MYERS SQUIBB COMPANY-15953607

PATIENT
  Age: 29 Year
  Sex: Male
  Weight: 65 kg

DRUGS (3)
  1. NORVIR [Concomitant]
  2. TRUVADA [Concomitant]
  3. REYATAZ [Suspect]
     Route: 048
     Dates: start: 20110804

REACTIONS (2)
  - HYPOPHAGIA [None]
  - MALNUTRITION [None]
